FAERS Safety Report 14604756 (Version 1)
Quarter: 2018Q1

REPORT INFORMATION
  Report Type: Spontaneous
  Country: IN (occurrence: IN)
  Receive Date: 20180306
  Receipt Date: 20180306
  Transmission Date: 20180509
  Serious: Yes (Disabling)
  Sender: FDA-Public Use
  Company Number: None

PATIENT
  Sex: Male

DRUGS (2)
  1. TOPROL XL 100 MG EXTENDED RELEASED TABLET [Concomitant]
  2. METOPROLOL. [Suspect]
     Active Substance: METOPROLOL
     Dosage: 6 MONTHS

REACTIONS (3)
  - Myocardial infarction [None]
  - Insomnia [None]
  - Drug ineffective [None]

NARRATIVE: CASE EVENT DATE: 20171001
